FAERS Safety Report 20378715 (Version 1)
Quarter: 2022Q1

REPORT INFORMATION
  Report Type: Spontaneous
  Country: US (occurrence: None)
  Receive Date: 20220125
  Receipt Date: 20220125
  Transmission Date: 20220423
  Serious: Yes (Other)
  Sender: FDA-Public Use
  Company Number: None

PATIENT
  Age: 62 Year
  Sex: Female
  Weight: 101.25 kg

DRUGS (6)
  1. DUPIXENT [Suspect]
     Active Substance: DUPILUMAB
     Indication: Asthma
     Dosage: OTHER FREQUENCY : SHOT EVERY 2 WEEKS;?
     Route: 030
     Dates: end: 20210916
  2. BYSTOLIC [Concomitant]
     Active Substance: NEBIVOLOL HYDROCHLORIDE
  3. NORVASC [Concomitant]
     Active Substance: AMLODIPINE BESYLATE
  4. EXEMESTANE [Concomitant]
     Active Substance: EXEMESTANE
  5. ALVESCO [Concomitant]
     Active Substance: CICLESONIDE
  6. vitamin d probiotic [Concomitant]

REACTIONS (6)
  - Malaise [None]
  - Pyrexia [None]
  - Eye swelling [None]
  - Stomatitis [None]
  - Pain [None]
  - Red blood cell sedimentation rate increased [None]

NARRATIVE: CASE EVENT DATE: 20210916
